FAERS Safety Report 15552072 (Version 3)
Quarter: 2021Q2

REPORT INFORMATION
  Report Type: Spontaneous
  Country: US (occurrence: US)
  Receive Date: 20181025
  Receipt Date: 20210622
  Transmission Date: 20210716
  Serious: Yes (Hospitalization, Other)
  Sender: FDA-Public Use
  Company Number: US-ASTRAZENECA-2018SF37514

PATIENT
  Age: 66 Year
  Sex: Male
  Weight: 120.2 kg

DRUGS (19)
  1. NEXIUM 24HR [Suspect]
     Active Substance: ESOMEPRAZOLE MAGNESIUM
     Route: 048
     Dates: start: 201201, end: 201703
  2. GABAPENTIN. [Concomitant]
     Active Substance: GABAPENTIN
  3. NEXIUM 24HR [Suspect]
     Active Substance: ESOMEPRAZOLE MAGNESIUM
     Route: 048
     Dates: start: 2014, end: 201703
  4. PRILOSEC OTC [Suspect]
     Active Substance: OMEPRAZOLE MAGNESIUM
     Route: 048
     Dates: start: 201201, end: 201703
  5. TAMSULOSIN [Concomitant]
     Active Substance: TAMSULOSIN
  6. TAMSULOSIN [Concomitant]
     Active Substance: TAMSULOSIN
  7. PROPRANOLOL [Concomitant]
     Active Substance: PROPRANOLOL HYDROCHLORIDE
  8. PREDNISONE. [Concomitant]
     Active Substance: PREDNISONE
  9. COLCRYS [Concomitant]
     Active Substance: COLCHICINE
  10. FINASTERIDE. [Concomitant]
     Active Substance: FINASTERIDE
  11. COLCHICINE. [Concomitant]
     Active Substance: COLCHICINE
  12. RESTASIS [Concomitant]
     Active Substance: CYCLOSPORINE
  13. NEXIUM 24HR [Suspect]
     Active Substance: ESOMEPRAZOLE MAGNESIUM
     Route: 048
     Dates: start: 2012, end: 2017
  14. DOXYCYCLINE. [Concomitant]
     Active Substance: DOXYCYCLINE
  15. ANDRODERM [Concomitant]
     Active Substance: TESTOSTERONE
  16. RAMIPRIL. [Concomitant]
     Active Substance: RAMIPRIL
  17. TRAMADOL. [Concomitant]
     Active Substance: TRAMADOL
  18. PRILOSEC OTC [Suspect]
     Active Substance: OMEPRAZOLE MAGNESIUM
     Route: 048
     Dates: start: 2012, end: 2017
  19. ELIQUIS [Concomitant]
     Active Substance: APIXABAN

REACTIONS (3)
  - Acute kidney injury [Not Recovered/Not Resolved]
  - Renal injury [Unknown]
  - Renal failure [Unknown]

NARRATIVE: CASE EVENT DATE: 2016
